FAERS Safety Report 21210247 (Version 3)
Quarter: 2022Q3

REPORT INFORMATION
  Report Type: Report from Study
  Country: MX (occurrence: MX)
  Receive Date: 20220814
  Receipt Date: 20220916
  Transmission Date: 20221027
  Serious: Yes (Hospitalization, Other)
  Sender: FDA-Public Use
  Company Number: MX-NOVARTISPH-NVSC2022MX180402

PATIENT
  Sex: Female

DRUGS (4)
  1. KISQALI [Suspect]
     Active Substance: RIBOCICLIB
     Indication: Breast cancer
     Dosage: UNK
     Route: 048
  2. INSULIN NOS [Concomitant]
     Active Substance: INSULIN NOS
     Indication: Diabetes mellitus
     Dosage: UNK
     Route: 065
  3. LEVOTHYROXINE [Concomitant]
     Active Substance: LEVOTHYROXINE
     Indication: Hypothyroidism
     Dosage: UNK
     Route: 065
  4. ALPRAZOLAM [Concomitant]
     Active Substance: ALPRAZOLAM
     Indication: Sleep disorder
     Dosage: UNK
     Route: 065

REACTIONS (16)
  - Metastases to central nervous system [Unknown]
  - Pulmonary oedema [Recovering/Resolving]
  - Chest discomfort [Unknown]
  - Cough [Unknown]
  - Dyspnoea [Unknown]
  - Lung disorder [Unknown]
  - Seizure [Unknown]
  - Malaise [Unknown]
  - General physical health deterioration [Unknown]
  - Fall [Unknown]
  - Fluid retention [Unknown]
  - Depression [Unknown]
  - Swelling [Unknown]
  - Fear of eating [Unknown]
  - Headache [Unknown]
  - Fatigue [Unknown]
